FAERS Safety Report 23116468 (Version 1)
Quarter: 2023Q4

REPORT INFORMATION
  Report Type: Spontaneous
  Country: CN (occurrence: CN)
  Receive Date: 20231027
  Receipt Date: 20231027
  Transmission Date: 20240109
  Serious: Yes (Other)
  Sender: FDA-Public Use
  Company Number: CN-SA-SAC20231025000273

PATIENT
  Age: 86 Year
  Sex: Male
  Weight: 50 kg

DRUGS (2)
  1. ENOXAPARIN SODIUM [Suspect]
     Active Substance: ENOXAPARIN SODIUM
     Indication: Cerebral infarction
     Dosage: 0.4 ML, QD
     Route: 058
     Dates: start: 20230412, end: 20230413
  2. ASPIRIN [Suspect]
     Active Substance: ASPIRIN
     Indication: Cerebral infarction
     Dosage: 100 MG, QD
     Route: 048
     Dates: start: 20230412, end: 20230413

REACTIONS (6)
  - Cerebral atrophy [Recovering/Resolving]
  - Lacunar infarction [Recovering/Resolving]
  - Cerebral infarction [Recovering/Resolving]
  - Condition aggravated [Recovering/Resolving]
  - Paranasal sinus inflammation [Recovering/Resolving]
  - Cerebral haemorrhage [Recovering/Resolving]

NARRATIVE: CASE EVENT DATE: 20230413
